FAERS Safety Report 8590817-4 (Version None)
Quarter: 2012Q3

REPORT INFORMATION
  Report Type: 
  Country: None (occurrence: None)
  Receive Date: 20120813
  Receipt Date: 20120804
  Transmission Date: 20120928
  Serious: Yes (Other)
  Sender: FDA-Public Use
  Company Number: US-BRISTOL-MYERS SQUIBB COMPANY-16839334

PATIENT

DRUGS (1)
  1. ABILIFY [Suspect]
     Dates: end: 20120804

REACTIONS (1)
  - EYELID OEDEMA [None]
